FAERS Safety Report 9444895 (Version 1)
Quarter: 2013Q3

REPORT INFORMATION
  Report Type: Spontaneous
  Country: US (occurrence: None)
  Receive Date: 20130802
  Receipt Date: 20130802
  Transmission Date: 20140515
  Serious: Yes (Hospitalization)
  Sender: FDA-Public Use
  Company Number: SP06864

PATIENT
  Age: 84 Year
  Sex: Male

DRUGS (11)
  1. XIFAXAN [Suspect]
     Indication: DIARRHOEA
     Route: 048
  2. ATORVASTATIN [Concomitant]
  3. ALLOPURINOL [Concomitant]
  4. CLONIDINE [Concomitant]
  5. FUROSEMIDE [Concomitant]
  6. DARBOPOETIN [Concomitant]
  7. LABETALOL [Concomitant]
  8. NIFEDIPINE [Concomitant]
  9. PHENYTOIN [Concomitant]
  10. TAMSULOSIN [Concomitant]
  11. FERROUS SULFATE [Concomitant]

REACTIONS (6)
  - Fall [None]
  - Prothrombin time prolonged [None]
  - Factor V inhibition [None]
  - Traumatic haematoma [None]
  - Activated partial thromboplastin time prolonged [None]
  - Catheter site haemorrhage [None]
